FAERS Safety Report 22353201 (Version 2)
Quarter: 2023Q2

REPORT INFORMATION
  Report Type: Spontaneous
  Country: SE (occurrence: None)
  Receive Date: 20230523
  Receipt Date: 20230526
  Transmission Date: 20230721
  Serious: Yes (Other)
  Sender: FDA-Public Use
  Company Number: SE-ROCHE-3351805

PATIENT
  Sex: Female

DRUGS (1)
  1. ALECENSA [Suspect]
     Active Substance: ALECTINIB HYDROCHLORIDE
     Indication: Non-small cell lung cancer
     Route: 065

REACTIONS (6)
  - Rheumatoid arthritis [Unknown]
  - Hypoaesthesia [Unknown]
  - Pain [Unknown]
  - Paraesthesia [Unknown]
  - Hypoaesthesia [Unknown]
  - Burning sensation [Unknown]
